FAERS Safety Report 17624690 (Version 1)
Quarter: 2020Q2

REPORT INFORMATION
  Report Type: Spontaneous
  Country: GB (occurrence: GB)
  Receive Date: 20200404
  Receipt Date: 20200404
  Transmission Date: 20200713
  Serious: Yes (Other)
  Sender: FDA-Public Use
  Company Number: GB-TEVA-2020-GB-1218371

PATIENT
  Age: 73 Year
  Sex: Female
  Weight: 59 kg

DRUGS (4)
  1. AMLODIPINE [Suspect]
     Active Substance: AMLODIPINE BESYLATE
     Dosage: 10 MG
     Route: 048
     Dates: start: 20191128, end: 20200315
  2. SPIRONOLACTONE. [Concomitant]
     Active Substance: SPIRONOLACTONE
     Dosage: MORNING 1 DOSAGE FORMS
     Dates: start: 20190815
  3. ATORVASTATIN [Concomitant]
     Active Substance: ATORVASTATIN
     Indication: BLOOD CHOLESTEROL
     Dosage: 1 DOSAGE FORMS
     Dates: start: 20190830
  4. INDAPAMIDE. [Concomitant]
     Active Substance: INDAPAMIDE
     Indication: BLOOD PRESSURE MEASUREMENT
     Dosage: EACH MORNING, 1 DOSAGE FORMS
     Dates: start: 20190815

REACTIONS (1)
  - Gingival hypertrophy [Unknown]
